FAERS Safety Report 21176252 (Version 1)
Quarter: 2022Q3

REPORT INFORMATION
  Report Type: Spontaneous
  Country: FI (occurrence: FI)
  Receive Date: 20220805
  Receipt Date: 20220805
  Transmission Date: 20221027
  Serious: Yes (Other)
  Sender: FDA-Public Use
  Company Number: None

PATIENT
  Age: 53 Year
  Sex: Female

DRUGS (2)
  1. AJOVY [Suspect]
     Active Substance: FREMANEZUMAB-VFRM
     Indication: Migraine prophylaxis
     Dates: start: 20201006
  2. SUMATRIPTAN [Concomitant]
     Active Substance: SUMATRIPTAN
     Indication: Migraine
     Dosage: ,,AS NECESSARY

REACTIONS (2)
  - Cutaneous vasculitis [Not Recovered/Not Resolved]
  - Chronic pigmented purpura [Not Recovered/Not Resolved]

NARRATIVE: CASE EVENT DATE: 20201001
